FAERS Safety Report 5285588-3 (Version None)
Quarter: 2007Q1

REPORT INFORMATION
  Report Type: 
  Country: None (occurrence: None)
  Receive Date: 20061229
  Receipt Date: 20060926
  Transmission Date: 20070707
  Serious: Yes (Other)
  Sender: FDA-Public Use
  Company Number: 2006UW18744

PATIENT
  Age: 45 Year
  Sex: Female

DRUGS (7)
  1. CRESTOR [Suspect]
     Dosage: 10 MG PO
     Route: 048
     Dates: start: 20060925
  2. LOTENSIN [Concomitant]
  3. GLUCOVANCE [Concomitant]
  4. AVANDIA [Concomitant]
  5. INSULIN [Concomitant]
  6. MINOCYCLINE HCL [Concomitant]
  7. ZOLOFT [Concomitant]

REACTIONS (1)
  - VISION BLURRED [None]
